FAERS Safety Report 21445614 (Version 3)
Quarter: 2022Q4

REPORT INFORMATION
  Report Type: Spontaneous
  Country: SE (occurrence: SE)
  Receive Date: 20221012
  Receipt Date: 20221111
  Transmission Date: 20230113
  Serious: Yes (Other)
  Sender: FDA-Public Use
  Company Number: SE-PFIZER INC-202201169355

PATIENT
  Age: 96 Year
  Sex: Female

DRUGS (1)
  1. ESTRADIOL [Suspect]
     Active Substance: ESTRADIOL
     Indication: Urinary tract infection
     Dosage: UNK
     Dates: start: 2016

REACTIONS (2)
  - Off label use of device [Unknown]
  - Therapeutic product ineffective for unapproved indication [Not Recovered/Not Resolved]
